FAERS Safety Report 9783225 (Version 1)
Quarter: 2013Q4

REPORT INFORMATION
  Report Type: Spontaneous
  Country: TR (occurrence: TR)
  Receive Date: 20131226
  Receipt Date: 20131226
  Transmission Date: 20140711
  Serious: Yes (Death, Hospitalization)
  Sender: FDA-Public Use
  Company Number: PHHY2013TR147735

PATIENT
  Age: 18 Year
  Sex: Female

DRUGS (2)
  1. RIFAMPICIN [Suspect]
     Indication: BRUCELLOSIS
     Dosage: 600 MG, UNK
  2. DOXYCYCLINE [Concomitant]
     Indication: BRUCELLOSIS
     Dosage: 200 MG, UNK

REACTIONS (16)
  - Haemorrhage intracranial [Fatal]
  - Hemiparesis [Unknown]
  - Convulsion [Unknown]
  - Speech disorder [Unknown]
  - Somnolence [Unknown]
  - Musculoskeletal stiffness [Unknown]
  - Meningism [Unknown]
  - Loss of consciousness [Unknown]
  - Altered state of consciousness [Unknown]
  - Stupor [Unknown]
  - Epilepsy [Unknown]
  - Thrombocytopenia [Recovered/Resolved]
  - Rash [Recovered/Resolved]
  - Petechiae [Recovered/Resolved]
  - Asthenia [Recovered/Resolved]
  - Ecchymosis [Recovered/Resolved]
